FAERS Safety Report 5372641-9 (Version None)
Quarter: 2007Q2

REPORT INFORMATION
  Report Type: 
  Country: None (occurrence: None)
  Receive Date: 20070627
  Receipt Date: 20070615
  Transmission Date: 20071010
  Serious: Yes (Other)
  Sender: FDA-Public Use
  Company Number: CL-PFIZER INC-2007050322

PATIENT
  Sex: Female

DRUGS (1)
  1. ZIPRASIDONE (CAPS) [Suspect]

REACTIONS (3)
  - OPTIC NEURITIS [None]
  - RETINITIS PIGMENTOSA [None]
  - UVEITIS [None]
